FAERS Safety Report 21332474 (Version 1)
Quarter: 2022Q3

REPORT INFORMATION
  Report Type: Spontaneous
  Country: FR (occurrence: FR)
  Receive Date: 20220914
  Receipt Date: 20220914
  Transmission Date: 20221027
  Serious: Yes (Hospitalization)
  Sender: FDA-Public Use
  Company Number: None

PATIENT
  Age: 24 Year
  Sex: Female
  Weight: 67 kg

DRUGS (2)
  1. HYQVIA [Suspect]
     Active Substance: HUMAN IMMUNOGLOBULIN G\HYALURONIDASE RECOMBINANT HUMAN
     Indication: Immunodeficiency common variable
     Dosage: 8 GRAM
     Route: 058
     Dates: start: 20220726, end: 20220726
  2. HYQVIA [Suspect]
     Active Substance: HUMAN IMMUNOGLOBULIN G\HYALURONIDASE RECOMBINANT HUMAN
     Dosage: 8 GRAM
     Route: 058
     Dates: start: 20220726, end: 20220726

REACTIONS (2)
  - Pyrexia [Recovered/Resolved]
  - Abdominal pain [Recovered/Resolved]

NARRATIVE: CASE EVENT DATE: 20220727
